FAERS Safety Report 10063609 (Version 1)
Quarter: 2014Q2

REPORT INFORMATION
  Report Type: Spontaneous
  Country: IT (occurrence: IT)
  Receive Date: 20140407
  Receipt Date: 20140407
  Transmission Date: 20141212
  Serious: Yes (Other)
  Sender: FDA-Public Use
  Company Number: IT-BAXTER-2014BAX016591

PATIENT
  Age: 7 Month
  Sex: Male

DRUGS (2)
  1. ENDOXAN BAXTER [Suspect]
     Indication: CHEMOTHERAPY
     Route: 065
  2. BUSULFAN [Suspect]
     Indication: CHEMOTHERAPY
     Route: 065

REACTIONS (9)
  - Musculoskeletal disorder [Unknown]
  - Upper respiratory tract infection [Unknown]
  - Melanocytic naevus [Unknown]
  - Cardiac ventricular disorder [Unknown]
  - Hypodontia [Unknown]
  - Poor personal hygiene [Unknown]
  - Muscle tightness [Unknown]
  - Unevaluable event [Unknown]
  - Muscle tightness [Unknown]
